FAERS Safety Report 16970974 (Version 3)
Quarter: 2019Q4

REPORT INFORMATION
  Report Type: Spontaneous
  Country: CA (occurrence: CA)
  Receive Date: 20191029
  Receipt Date: 20191212
  Transmission Date: 20200122
  Serious: Yes (Hospitalization, Other)
  Sender: FDA-Public Use
  Company Number: CA-JNJFOC-20191031242

PATIENT
  Sex: Male

DRUGS (1)
  1. STELARA [Suspect]
     Active Substance: USTEKINUMAB
     Indication: CROHN^S DISEASE
     Route: 058
     Dates: start: 20170829

REACTIONS (4)
  - Small intestinal obstruction [Unknown]
  - Drug level decreased [Unknown]
  - Crohn^s disease [Unknown]
  - Knee operation [Unknown]

NARRATIVE: CASE EVENT DATE: 2019
